FAERS Safety Report 15127982 (Version 4)
Quarter: 2019Q3

REPORT INFORMATION
  Report Type: Spontaneous
  Country: DE (occurrence: DE)
  Receive Date: 20180710
  Receipt Date: 20190802
  Transmission Date: 20191004
  Serious: Yes (Hospitalization)
  Sender: FDA-Public Use
  Company Number: DE-EMD SERONO-9034340

PATIENT
  Age: 59 Year
  Sex: Male

DRUGS (2)
  1. REBIF [Suspect]
     Active Substance: INTERFERON BETA-1A
     Indication: MULTIPLE SCLEROSIS
     Route: 058
     Dates: start: 200803
  2. REBIF [Suspect]
     Active Substance: INTERFERON BETA-1A
     Route: 058
     Dates: start: 2010

REACTIONS (8)
  - Post procedural haemorrhage [Unknown]
  - Ill-defined disorder [Unknown]
  - Liver disorder [Unknown]
  - Anastomotic infection [Unknown]
  - Squamous cell carcinoma of lung [Not Recovered/Not Resolved]
  - Asthma [Unknown]
  - White blood cell count decreased [Unknown]
  - Anastomotic complication [Unknown]

NARRATIVE: CASE EVENT DATE: 201802
